FAERS Safety Report 6067564-6 (Version None)
Quarter: 2009Q1

REPORT INFORMATION
  Report Type: 
  Country: None (occurrence: None)
  Receive Date: 20090202
  Receipt Date: 20090124
  Transmission Date: 20090719
  Serious: Yes (Other)
  Sender: FDA-Public Use
  Company Number: SPV1-2009-00124

PATIENT
  Age: 17 Year
  Sex: Female
  Weight: 59 kg

DRUGS (3)
  1. VYVANSE [Suspect]
     Indication: ATTENTION DEFICIT/HYPERACTIVITY DISORDER
     Dosage: 40 MG, 1X/DAY: QD, ORAL
     Route: 048
     Dates: start: 20090122, end: 20090122
  2. VYVANSE [Suspect]
     Indication: DEPRESSION
     Dosage: 40 MG, 1X/DAY: QD, ORAL
     Route: 048
     Dates: start: 20090122, end: 20090122
  3. DESVENLAFAXINE (DESVENLAFAXINE) [Concomitant]

REACTIONS (18)
  - ANOREXIA [None]
  - CONDITION AGGRAVATED [None]
  - CONFUSIONAL STATE [None]
  - DEPRESSION [None]
  - DIPLOPIA [None]
  - DRY MOUTH [None]
  - DYSARTHRIA [None]
  - FEELING ABNORMAL [None]
  - FRUSTRATION [None]
  - MOOD SWINGS [None]
  - OFF LABEL USE [None]
  - POLYDIPSIA [None]
  - PSYCHOTIC DISORDER [None]
  - SPEECH DISORDER [None]
  - SUICIDAL IDEATION [None]
  - VISION BLURRED [None]
  - VISUAL IMPAIRMENT [None]
  - VOMITING [None]
